FAERS Safety Report 7812606-8 (Version None)
Quarter: 2011Q4

REPORT INFORMATION
  Report Type: 
  Country: None (occurrence: None)
  Receive Date: 20111013
  Receipt Date: 20110816
  Transmission Date: 20120403
  Serious: No
  Sender: FDA-Public Use
  Company Number: US-NOVEN-11US002996

PATIENT
  Sex: Male

DRUGS (10)
  1. NEXIUM [Concomitant]
     Indication: GASTRIC DISORDER
     Dosage: UNK
     Route: 048
  2. HYZAAR [Concomitant]
     Indication: PRODUCT USED FOR UNKNOWN INDICATION
  3. PERCOCET [Concomitant]
     Indication: PAIN
     Dosage: UNK
  4. SIMVASTATIN [Concomitant]
     Indication: BLOOD CHOLESTEROL
  5. FENTANYL [Suspect]
     Indication: PRODUCT USED FOR UNKNOWN INDICATION
     Dosage: 75 UG/HR
     Route: 061
  6. LOVAXAZINE [Concomitant]
     Indication: PRODUCT USED FOR UNKNOWN INDICATION
  7. ROPINIROLE [Concomitant]
     Indication: PRODUCT USED FOR UNKNOWN INDICATION
  8. TIZANIDINE HYDROCHLORIDE [Concomitant]
     Indication: PRODUCT USED FOR UNKNOWN INDICATION
  9. AMLODIPINE [Concomitant]
     Indication: PRODUCT USED FOR UNKNOWN INDICATION
  10. IBUPROFEN [Concomitant]
     Indication: PRODUCT USED FOR UNKNOWN INDICATION
     Dosage: 800 MG, QD
     Route: 048

REACTIONS (6)
  - DIZZINESS [None]
  - SLEEP TALKING [None]
  - ASTHENIA [None]
  - NIGHT SWEATS [None]
  - SOMNOLENCE [None]
  - INADEQUATE ANALGESIA [None]
